FAERS Safety Report 17994325 (Version 1)
Quarter: 2020Q3

REPORT INFORMATION
  Report Type: Spontaneous
  Country: US (occurrence: US)
  Receive Date: 20200708
  Receipt Date: 20200708
  Transmission Date: 20201103
  Serious: No
  Sender: FDA-Public Use
  Company Number: US-PFIZER INC-2020259244

PATIENT
  Age: 59 Year
  Sex: Female

DRUGS (4)
  1. XANAX [Suspect]
     Active Substance: ALPRAZOLAM
     Indication: OESOPHAGEAL SPASM
     Dosage: 0.25MG CUT IN HALF, ONCE DAILY, AS NEEDED
  2. XANAX [Suspect]
     Active Substance: ALPRAZOLAM
     Indication: GASTRIC DISORDER
  3. XANAX [Suspect]
     Active Substance: ALPRAZOLAM
     Indication: IRRITABLE BOWEL SYNDROME
  4. XANAX [Suspect]
     Active Substance: ALPRAZOLAM
     Indication: GASTROOESOPHAGEAL REFLUX DISEASE

REACTIONS (3)
  - Product use in unapproved indication [Unknown]
  - Dysphagia [Unknown]
  - Off label use [Unknown]
